FAERS Safety Report 10900726 (Version 1)
Quarter: 2015Q1

REPORT INFORMATION
  Report Type: Report from Study
  Country: CA (occurrence: CA)
  Receive Date: 20150310
  Receipt Date: 20150310
  Transmission Date: 20150721
  Serious: Yes (Other)
  Sender: FDA-Public Use
  Company Number: CA-JNJFOC-20150303710

PATIENT
  Age: 32 Year
  Sex: Male
  Weight: 63.3 kg

DRUGS (2)
  1. REMICADE [Suspect]
     Active Substance: INFLIXIMAB
     Indication: CROHN^S DISEASE
     Dosage: 5MG/ KG ONCE EVERY 8 WEEKS
     Route: 042
     Dates: start: 20130913
  2. REMICADE [Suspect]
     Active Substance: INFLIXIMAB
     Indication: CROHN^S DISEASE
     Dosage: 10 MG/ KG ONCE EVERY 8 WEEKS
     Route: 042

REACTIONS (1)
  - Ileal ulcer [Unknown]

NARRATIVE: CASE EVENT DATE: 20150303
